FAERS Safety Report 18687114 (Version 1)
Quarter: 2020Q4

REPORT INFORMATION
  Report Type: Spontaneous
  Country: US (occurrence: US)
  Receive Date: 20201231
  Receipt Date: 20201231
  Transmission Date: 20210114
  Serious: Yes (Other)
  Sender: FDA-Public Use
  Company Number: US-SUN PHARMACEUTICAL INDUSTRIES LTD-2020R1-273168

PATIENT
  Age: 76 Year
  Sex: Female

DRUGS (1)
  1. METHOTREXATE. [Suspect]
     Active Substance: METHOTREXATE
     Indication: ARTHRITIS
     Dosage: 10 MILLIGRAM, DAILY
     Route: 065

REACTIONS (2)
  - Toxicity to various agents [Unknown]
  - Incorrect dose administered [Unknown]
